FAERS Safety Report 10008491 (Version 1)
Quarter: 2014Q1

REPORT INFORMATION
  Report Type: Spontaneous
  Country: US (occurrence: US)
  Receive Date: 20140313
  Receipt Date: 20140313
  Transmission Date: 20141002
  Serious: No
  Sender: FDA-Public Use
  Company Number: US-TEVA-466391USA

PATIENT
  Sex: Female

DRUGS (5)
  1. NUVIGIL [Suspect]
     Indication: NARCOLEPSY
  2. NUVIGIL [Suspect]
     Indication: SOMNOLENCE
  3. SINGULAIR [Concomitant]
     Indication: ASTHMA
  4. XYZAL [Concomitant]
     Indication: HYPERSENSITIVITY
  5. ALBUTEROL [Concomitant]
     Indication: ASTHMA

REACTIONS (1)
  - Nausea [Recovered/Resolved]
